FAERS Safety Report 15791102 (Version 1)
Quarter: 2019Q1

REPORT INFORMATION
  Report Type: Spontaneous
  Country: IT (occurrence: IT)
  Receive Date: 20190104
  Receipt Date: 20190104
  Transmission Date: 20190417
  Serious: Yes (Life-Threatening)
  Sender: FDA-Public Use
  Company Number: IT-EISAI MEDICAL RESEARCH-EC-2019-050114

PATIENT
  Age: 37 Year
  Sex: Female
  Weight: 77 kg

DRUGS (2)
  1. FYCOMPA [Suspect]
     Active Substance: PERAMPANEL
     Indication: EPILEPSY
     Route: 002
     Dates: start: 20180830, end: 20181224
  2. VIMPAT [Concomitant]
     Active Substance: LACOSAMIDE
     Indication: EPILEPSY
     Route: 048

REACTIONS (1)
  - Irritability [Not Recovered/Not Resolved]

NARRATIVE: CASE EVENT DATE: 20180831
